FAERS Safety Report 25238569 (Version 2)
Quarter: 2025Q2

REPORT INFORMATION
  Report Type: Report from Study
  Country: US (occurrence: US)
  Receive Date: 20250425
  Receipt Date: 20250624
  Transmission Date: 20250717
  Serious: Yes (Hospitalization, Other)
  Sender: ABBVIE
  Company Number: US-ABBVIE-6243160

PATIENT
  Age: 83 Year
  Sex: Female

DRUGS (2)
  1. RINVOQ [Suspect]
     Active Substance: UPADACITINIB
     Indication: Dermatitis atopic
     Route: 048
     Dates: start: 20240402
  2. RINVOQ [Suspect]
     Active Substance: UPADACITINIB
     Indication: Dermatitis atopic
     Route: 048

REACTIONS (6)
  - Cardiac failure congestive [Recovering/Resolving]
  - Dyspnoea [Unknown]
  - Compression fracture [Recovering/Resolving]
  - Osteoporosis [Unknown]
  - Pleural effusion [Recovering/Resolving]
  - Gastric infection [Unknown]

NARRATIVE: CASE EVENT DATE: 20250301
